FAERS Safety Report 4503031-6 (Version None)
Quarter: 2004Q4

REPORT INFORMATION
  Report Type: 
  Country: None (occurrence: None)
  Receive Date: 20041112
  Receipt Date: 20041102
  Transmission Date: 20050328
  Serious: Yes (Hospitalization)
  Sender: FDA-Public Use
  Company Number: 2004IM000925

PATIENT
  Age: 57 Year
  Sex: Male

DRUGS (4)
  1. ADVAFERON         (A643 INTERFERON ALFACON-1) [Suspect]
     Indication: HEPATITIS C
     Dosage: 18 MU; QD; INTRAMUSCULAR
     Route: 030
     Dates: start: 20041012
  2. LOXOPROFEN SODIUM [Concomitant]
  3. TEPRENONE [Concomitant]
  4. ZOLPIDEM TARTRATE [Concomitant]

REACTIONS (1)
  - PANCREATITIS ACUTE [None]
